FAERS Safety Report 4534964-2 (Version None)
Quarter: 2004Q4

REPORT INFORMATION
  Report Type: 
  Country: None (occurrence: None)
  Receive Date: 20041222
  Receipt Date: 20040924
  Transmission Date: 20050328
  Serious: No
  Sender: FDA-Public Use
  Company Number: US-BRISTOL-MYERS SQUIBB COMPANY-12711487

PATIENT
  Age: 71 Year
  Sex: Male
  Weight: 91 kg

DRUGS (2)
  1. PRAVACHOL [Suspect]
     Indication: BLOOD CHOLESTEROL
     Dosage: IN APR-2004 DOSE INCREASED TO 40 MG DAILY
     Route: 048
     Dates: start: 20030401, end: 20040901
  2. VITAMIN E [Concomitant]

REACTIONS (2)
  - MEDICATION ERROR [None]
  - PERSONALITY CHANGE [None]
